FAERS Safety Report 19682306 (Version 1)
Quarter: 2021Q3

REPORT INFORMATION
  Report Type: Spontaneous
  Country: DE (occurrence: DE)
  Receive Date: 20210810
  Receipt Date: 20210810
  Transmission Date: 20211014
  Serious: Yes (Other)
  Sender: FDA-Public Use
  Company Number: DE-MYLANLABS-2021M1049080

PATIENT
  Age: 2 Year
  Sex: Female

DRUGS (5)
  1. ANTITHYMOCYTE IMMUNOGLOBULIN [Suspect]
     Active Substance: THYMOCYTE IMMUNE GLOBULIN NOS
     Indication: PROPHYLAXIS AGAINST GRAFT VERSUS HOST DISEASE
     Dosage: 10 MILLIGRAM/KILOGRAM, TID (3X10 MG/KG)
  2. FLUDARABINE [Suspect]
     Active Substance: FLUDARABINE PHOSPHATE
     Indication: ALLOGENIC STEM CELL TRANSPLANTATION
     Dosage: UNK
  3. THIOTEPA. [Suspect]
     Active Substance: THIOTEPA
     Indication: ALLOGENIC STEM CELL TRANSPLANTATION
     Dosage: UNK
  4. MELPHALAN. [Suspect]
     Active Substance: MELPHALAN
     Indication: ALLOGENIC STEM CELL TRANSPLANTATION
     Dosage: UNK
  5. MYCOPHENOLATE MOFETIL. [Suspect]
     Active Substance: MYCOPHENOLATE MOFETIL
     Indication: PROPHYLAXIS AGAINST GRAFT VERSUS HOST DISEASE
     Dosage: UNK

REACTIONS (3)
  - Cytomegalovirus infection reactivation [Unknown]
  - Adenovirus infection [Unknown]
  - Viraemia [Unknown]
